FAERS Safety Report 15339773 (Version 2)
Quarter: 2018Q4

REPORT INFORMATION
  Report Type: Report from Study
  Country: None (occurrence: US)
  Receive Date: 20180831
  Receipt Date: 20181025
  Transmission Date: 20190204
  Serious: Yes (Death)
  Sender: FDA-Public Use
  Company Number: US-ABBVIE-18K-163-2470707-00

PATIENT
  Age: 77 Year
  Sex: Male
  Weight: 84.9 kg

DRUGS (6)
  1. VENCLEXTA [Suspect]
     Active Substance: VENETOCLAX
     Indication: CHRONIC LYMPHOCYTIC LEUKAEMIA
     Dosage: MAINTENANCE DOSE, WEEK ONE?1ST RAMP UP DOSE
     Route: 048
     Dates: start: 201804, end: 201804
  2. VENCLEXTA [Suspect]
     Active Substance: VENETOCLAX
     Dosage: MAINTENANCE DOSE, WEEK THREE?3RD RAMP UP DOSE
     Route: 048
     Dates: start: 201804, end: 201804
  3. VENCLEXTA [Suspect]
     Active Substance: VENETOCLAX
     Dosage: MAINTENANCE DOSE, WEEK TWO?2ND RAMP UP DOSE
     Route: 048
     Dates: start: 201804, end: 201804
  4. VENCLEXTA [Suspect]
     Active Substance: VENETOCLAX
     Dosage: FOUR TABS ONCE DAILY.
     Route: 048
     Dates: start: 201805, end: 201808
  5. VENCLEXTA [Suspect]
     Active Substance: VENETOCLAX
     Dosage: MAINTENANCE DOSE, WEEK FOUR?4TH RAMP UP DOSE
     Route: 048
     Dates: start: 201804, end: 201804
  6. ALBUTER [Concomitant]
     Indication: RESPIRATORY DISORDER

REACTIONS (3)
  - Pancytopenia [Fatal]
  - Respiratory distress [Fatal]
  - Failure to thrive [Fatal]

NARRATIVE: CASE EVENT DATE: 20180826
